FAERS Safety Report 10565149 (Version 1)
Quarter: 2014Q4

REPORT INFORMATION
  Report Type: Spontaneous
  Country: CA (occurrence: None)
  Receive Date: 20141103
  Receipt Date: 20141103
  Transmission Date: 20150529
  Serious: Yes (Other)
  Sender: FDA-Public Use
  Company Number: FK201404660

PATIENT
  Age: 65 Year
  Sex: Female
  Weight: 85 kg

DRUGS (3)
  1. IRINOTECAN [Suspect]
     Active Substance: IRINOTECAN
     Indication: PRODUCT USED FOR UNKNOWN INDICATION
     Dosage: 349 MG, 1 IN 2 WK, INTRAVENOUS ( NOT OTHERWISE SPECIFIED)
     Route: 042
  2. FLUOROURACIL. [Concomitant]
     Active Substance: FLUOROURACIL
  3. LEUCOVORIN CALCIUM (CALCIUM FOLINATE) [Concomitant]

REACTIONS (9)
  - Abdominal discomfort [None]
  - Flushing [None]
  - Hypersensitivity [None]
  - Dizziness [None]
  - Dysarthria [None]
  - Nervousness [None]
  - Slow speech [None]
  - Chest discomfort [None]
  - Dyspnoea [None]
